FAERS Safety Report 6131231-0 (Version None)
Quarter: 2009Q1

REPORT INFORMATION
  Report Type: 
  Country: None (occurrence: None)
  Receive Date: 20090325
  Receipt Date: 20080214
  Transmission Date: 20090719
  Serious: Yes (Other)
  Sender: FDA-Public Use
  Company Number: US-BRISTOL-MYERS SQUIBB COMPANY-14021745

PATIENT
  Age: 60 Year
  Sex: Male
  Weight: 66 kg

DRUGS (7)
  1. ERBITUX [Suspect]
     Indication: COLORECTAL CANCER METASTATIC
     Dosage: LOADING DOSE:400 MG/M2(675 MG),WEEKLY 250MG/M2ON 16-NOV AND 21-NOV-2007
     Route: 042
     Dates: start: 20071109, end: 20071121
  2. IRINOTECAN HCL [Concomitant]
  3. BENADRYL [Concomitant]
  4. AVASTIN [Concomitant]
  5. FLUOROURACIL [Concomitant]
  6. MINOCYCLINE HCL [Concomitant]
     Route: 048
  7. CLINDAMYCIN HCL [Concomitant]
     Route: 061

REACTIONS (1)
  - SKIN EXFOLIATION [None]
